FAERS Safety Report 11751911 (Version 1)
Quarter: 2015Q4

REPORT INFORMATION
  Report Type: Spontaneous
  Country: JP (occurrence: JP)
  Receive Date: 20151118
  Receipt Date: 20151118
  Transmission Date: 20160304
  Serious: Yes (Other)
  Sender: FDA-Public Use
  Company Number: JP-MYLANLABS-2015M1038634

PATIENT

DRUGS (1)
  1. FONDAPARINUX [Suspect]
     Active Substance: FONDAPARINUX
     Indication: PULMONARY EMBOLISM
     Dosage: 7.5 MG, QD
     Route: 058
     Dates: start: 20150917, end: 20150924

REACTIONS (1)
  - Lymphatic fistula [Recovering/Resolving]

NARRATIVE: CASE EVENT DATE: 201509
